FAERS Safety Report 23181623 (Version 2)
Quarter: 2025Q3

REPORT INFORMATION
  Report Type: Report from Study
  Country: US (occurrence: US)
  Receive Date: 20231114
  Receipt Date: 20250813
  Transmission Date: 20251020
  Serious: Yes (Other)
  Sender: ABBVIE
  Company Number: US-ABBVIE-5491604

PATIENT
  Age: 72 Year
  Sex: Female

DRUGS (2)
  1. SKYRIZI [Suspect]
     Active Substance: RISANKIZUMAB-RZAA
     Indication: Psoriasis
     Route: 058
     Dates: start: 20210323
  2. SKYRIZI [Suspect]
     Active Substance: RISANKIZUMAB-RZAA
     Route: 058

REACTIONS (7)
  - Cataract [Recovered/Resolved with Sequelae]
  - Scar [Unknown]
  - Foreign body sensation in eyes [Unknown]
  - Diverticulitis [Recovering/Resolving]
  - Colitis [Recovering/Resolving]
  - Lacrimation increased [Unknown]
  - Dry eye [Unknown]

NARRATIVE: CASE EVENT DATE: 20241201
